FAERS Safety Report 17418144 (Version 1)
Quarter: 2020Q1

REPORT INFORMATION
  Report Type: Report from Study
  Country: CA (occurrence: CA)
  Receive Date: 20200214
  Receipt Date: 20200214
  Transmission Date: 20200409
  Serious: Yes (Other)
  Sender: FDA-Public Use
  Company Number: CA-PFIZER INC-2020062964

PATIENT
  Age: 44 Year
  Sex: Female

DRUGS (6)
  1. VOLTAREN EMULGEL BACK + MUSCLE PAIN [Concomitant]
     Active Substance: DICLOFENAC DIETHYLAMINE
     Dosage: 500 MG, 2 EVERY 1 DAY
     Route: 048
  2. COSENTYX [Suspect]
     Active Substance: SECUKINUMAB
     Dosage: 150 MG, UNK
     Route: 058
  3. COSENTYX [Suspect]
     Active Substance: SECUKINUMAB
     Indication: PSORIATIC ARTHROPATHY
     Dosage: 300 MG, MONTHLY
     Route: 058
  4. METHOTREXATE SODIUM. [Suspect]
     Active Substance: METHOTREXATE SODIUM
     Dosage: 15 MG, WEEKLY
     Route: 058
  5. COSENTYX [Suspect]
     Active Substance: SECUKINUMAB
     Indication: PSORIATIC ARTHROPATHY
     Dosage: 150 MG, WEEKLY
     Route: 058
  6. PLAQUENIL [Concomitant]
     Active Substance: HYDROXYCHLOROQUINE SULFATE
     Dosage: 2 DF, 2 EVERY 1 DAY
     Route: 048

REACTIONS (19)
  - Chronic spontaneous urticaria [Not Recovered/Not Resolved]
  - Drug ineffective [Not Recovered/Not Resolved]
  - Erythematotelangiectatic rosacea [Not Recovered/Not Resolved]
  - Erythema [Not Recovered/Not Resolved]
  - Skin papilloma [Not Recovered/Not Resolved]
  - Hepatotoxicity [Not Recovered/Not Resolved]
  - Skin lesion [Not Recovered/Not Resolved]
  - Papulopustular rosacea [Not Recovered/Not Resolved]
  - Pruritus [Not Recovered/Not Resolved]
  - Scab [Not Recovered/Not Resolved]
  - Injection site pain [Not Recovered/Not Resolved]
  - Laryngitis [Not Recovered/Not Resolved]
  - Oedema [Not Recovered/Not Resolved]
  - Blister [Not Recovered/Not Resolved]
  - Inappropriate schedule of product administration [Not Recovered/Not Resolved]
  - Angioedema [Not Recovered/Not Resolved]
  - Sinusitis [Not Recovered/Not Resolved]
  - Skin plaque [Not Recovered/Not Resolved]
  - Papule [Not Recovered/Not Resolved]
